FAERS Safety Report 11290889 (Version 1)
Quarter: 2015Q3

REPORT INFORMATION
  Report Type: Spontaneous
  Country: US (occurrence: US)
  Receive Date: 20150722
  Receipt Date: 20150722
  Transmission Date: 20151125
  Serious: No
  Sender: FDA-Public Use
  Company Number: US-UNITED THERAPEUTICS-UNT-2015-005422

PATIENT
  Sex: Female
  Weight: 109.21 kg

DRUGS (3)
  1. LETAIRIS [Concomitant]
     Active Substance: AMBRISENTAN
     Indication: PRODUCT USED FOR UNKNOWN INDICATION
  2. ADCIRCA [Concomitant]
     Active Substance: TADALAFIL
     Indication: PRODUCT USED FOR UNKNOWN INDICATION
  3. REMODULIN [Suspect]
     Active Substance: TREPROSTINIL
     Indication: PULMONARY HYPERTENSION
     Dosage: 0.016 ?G/KG/MIN, CONTINUING
     Route: 058
     Dates: start: 20150112

REACTIONS (6)
  - Drug dose omission [Recovered/Resolved]
  - Infusion site pain [Recovered/Resolved]
  - Infusion site haemorrhage [Recovered/Resolved]
  - Device leakage [Recovered/Resolved]
  - Infusion site erythema [Recovered/Resolved]
  - Device dislocation [Recovered/Resolved]
